FAERS Safety Report 20452956 (Version 1)
Quarter: 2022Q1

REPORT INFORMATION
  Report Type: Other
  Country: RO (occurrence: None)
  Receive Date: 20220210
  Receipt Date: 20220210
  Transmission Date: 20220424
  Serious: Yes (Hospitalization)
  Sender: FDA-Public Use
  Company Number: RO-ROCHE-3015559

PATIENT
  Sex: Female
  Weight: 60 kg

DRUGS (1)
  1. HERCEPTIN [Suspect]
     Active Substance: TRASTUZUMAB
     Indication: Product used for unknown indication
     Route: 058

REACTIONS (5)
  - Gait disturbance [Unknown]
  - Weight decreased [Unknown]
  - Malaise [Unknown]
  - Drug intolerance [Unknown]
  - Decreased appetite [Unknown]
